FAERS Safety Report 5485291-0 (Version None)
Quarter: 2007Q4

REPORT INFORMATION
  Report Type: 
  Country: None (occurrence: None)
  Receive Date: 20071015
  Receipt Date: 20071008
  Transmission Date: 20080405
  Serious: Yes (Hospitalization)
  Sender: FDA-Public Use
  Company Number: US-AMGEN-US246879

PATIENT
  Age: 85 Year
  Sex: Female

DRUGS (3)
  1. SENSIPAR [Suspect]
     Indication: HYPERPARATHYROIDISM SECONDARY
  2. SINGULAIR [Concomitant]
  3. LASIX [Concomitant]

REACTIONS (2)
  - RASH PRURITIC [None]
  - SYNCOPE [None]
